FAERS Safety Report 6248450-5 (Version None)
Quarter: 2009Q2

REPORT INFORMATION
  Report Type: 
  Country: None (occurrence: None)
  Receive Date: 20090626
  Receipt Date: 20090626
  Transmission Date: 20091009
  Serious: Yes (Other)
  Sender: FDA-Public Use
  Company Number: None

PATIENT
  Sex: Female
  Weight: 52.1637 kg

DRUGS (2)
  1. CELEBREX [Suspect]
     Indication: ARTHRALGIA
     Dosage: 1 CAPSULE DAILY
     Dates: start: 20060901, end: 20080501
  2. CELEBREX [Suspect]
     Indication: PAIN IN EXTREMITY
     Dosage: 1 CAPSULE DAILY
     Dates: start: 20060901, end: 20080501

REACTIONS (9)
  - ARTHRALGIA [None]
  - DISORIENTATION [None]
  - FACIAL PALSY [None]
  - GAIT DISTURBANCE [None]
  - MUSCLE SPASMS [None]
  - PAIN IN EXTREMITY [None]
  - PARAESTHESIA [None]
  - SKIN DISCOLOURATION [None]
  - SPEECH DISORDER [None]
